FAERS Safety Report 10747026 (Version 2)
Quarter: 2015Q4

REPORT INFORMATION
  Report Type: Spontaneous
  Country: JP (occurrence: JP)
  Receive Date: 20150129
  Receipt Date: 20151125
  Transmission Date: 20160304
  Serious: Yes (Life-Threatening)
  Sender: FDA-Public Use
  Company Number: JP-BEH-2015048354

PATIENT
  Age: 40 Year
  Sex: Female
  Weight: 47.1 kg

DRUGS (17)
  1. ESLAX [Suspect]
     Active Substance: ROCURONIUM BROMIDE
     Route: 042
     Dates: start: 20150122
  2. ESLAX [Suspect]
     Active Substance: ROCURONIUM BROMIDE
     Route: 042
     Dates: start: 20150122, end: 20150122
  3. VOLUVEN [Suspect]
     Active Substance: HYDROXYETHYL STARCH 130/0.4
     Indication: VOLUME BLOOD DECREASED
     Route: 042
     Dates: start: 20150122, end: 20150122
  4. FLUMARIN [Suspect]
     Active Substance: FLOMOXEF SODIUM
     Indication: ANTIBIOTIC PROPHYLAXIS
     Route: 041
     Dates: start: 20150122, end: 20150122
  5. FRESH FROZEN PLASMA [Concomitant]
     Active Substance: HUMAN PLASMA
     Dosage: DURING OPERATION
     Dates: start: 20150122
  6. EPHEDRINE. [Concomitant]
     Active Substance: EPHEDRINE
     Indication: GENERAL ANAESTHESIA
     Dates: start: 20150122
  7. NEOSYNESIN [Concomitant]
     Active Substance: PHENYLEPHRINE HYDROCHLORIDE
     Indication: BLOOD PRESSURE DECREASED
     Dates: start: 20150122
  8. RED CELL CONCENTRATED [Concomitant]
     Active Substance: HUMAN RED BLOOD CELL
     Dosage: DURING OPERATION
     Dates: start: 20150122
  9. NOREPINEPHRINE [Concomitant]
     Active Substance: NOREPINEPHRINE\NOREPINEPHRINE BITARTRATE
     Indication: BLOOD PRESSURE DECREASED
     Dates: start: 20150122
  10. ESLAX [Suspect]
     Active Substance: ROCURONIUM BROMIDE
     Indication: ANAESTHESIA
     Dosage: 1 VIAL/1DAY
     Route: 042
     Dates: start: 20141213, end: 20141213
  11. MEPIVACAINE [Suspect]
     Active Substance: MEPIVACAINE\MEPIVACAINE HYDROCHLORIDE
     Indication: EPIDURAL ANAESTHESIA
     Route: 061
     Dates: start: 20150122, end: 20150122
  12. SEVOFLURANE. [Concomitant]
     Active Substance: SEVOFLURANE
     Indication: GENERAL ANAESTHESIA
     Dates: start: 20150122
  13. ALBUMINAR [Suspect]
     Active Substance: ALBUMIN (HUMAN)
     Indication: VOLUME BLOOD DECREASED
     Route: 042
     Dates: start: 20150122, end: 20150122
  14. XYLOCAINE [Suspect]
     Active Substance: LIDOCAINE HYDROCHLORIDE
     Indication: EPIDURAL ANAESTHESIA
     Route: 008
     Dates: start: 20150122, end: 20150122
  15. PROPOFOL. [Suspect]
     Active Substance: PROPOFOL
     Indication: ANAESTHESIA
     Route: 042
     Dates: start: 20150122, end: 20150122
  16. MIDAZOLAM [Suspect]
     Active Substance: MIDAZOLAM\MIDAZOLAM HYDROCHLORIDE
     Indication: ANAESTHESIA
     Dosage: INJECTION.
     Route: 042
     Dates: start: 20150122, end: 20150122
  17. ULTIVA [Suspect]
     Active Substance: REMIFENTANIL HYDROCHLORIDE
     Indication: ANAESTHESIA
     Dosage: 0.1-0.2 MCG/KG/MINUTE
     Route: 042
     Dates: start: 20150122, end: 20150122

REACTIONS (6)
  - Anaphylactic shock [Recovered/Resolved]
  - Flushing [Recovered/Resolved]
  - Erythema [Recovered/Resolved]
  - Hypotension [Recovered/Resolved]
  - Rash [Recovered/Resolved]
  - Urticaria [Recovered/Resolved]

NARRATIVE: CASE EVENT DATE: 20150122
